FAERS Safety Report 26125946 (Version 1)
Quarter: 2025Q4

REPORT INFORMATION
  Report Type: Spontaneous
  Country: US (occurrence: None)
  Receive Date: 20251205
  Receipt Date: 20251205
  Transmission Date: 20260118
  Serious: Yes (Hospitalization, Other)
  Sender: APOTEX
  Company Number: US-APOTEX-2025AP033432

PATIENT
  Age: 26 Year
  Sex: Female

DRUGS (3)
  1. CARBAMAZEPINE [Suspect]
     Active Substance: CARBAMAZEPINE
     Indication: Trigeminal neuralgia
     Dosage: 300 MILLIGRAM, BID
     Route: 065
  2. CARBAMAZEPINE [Suspect]
     Active Substance: CARBAMAZEPINE
     Dosage: 900 MILLIGRAM, BID
     Route: 065
  3. CARBAMAZEPINE [Suspect]
     Active Substance: CARBAMAZEPINE
     Dosage: 600 MILLIGRAM, QD
     Route: 065

REACTIONS (3)
  - Intentional product use issue [Unknown]
  - Drug-induced liver injury [Recovered/Resolved]
  - Drug reaction with eosinophilia and systemic symptoms [Recovered/Resolved]
